FAERS Safety Report 11115017 (Version 1)
Quarter: 2015Q2

REPORT INFORMATION
  Report Type: Spontaneous
  Country: US (occurrence: None)
  Receive Date: 20150513
  Receipt Date: 20150513
  Transmission Date: 20150821
  Serious: Yes (Other)
  Sender: FDA-Public Use
  Company Number: US-H14001-15-00692

PATIENT
  Sex: Female

DRUGS (1)
  1. CISPLATIN (CISPLATIN) (UNKNOWN) (CISPLATIN) [Suspect]
     Active Substance: CISPLATIN
     Indication: AESTHESIONEUROBLASTOMA

REACTIONS (2)
  - Aphasia [None]
  - Oesophageal stenosis [None]
